FAERS Safety Report 5858018-8 (Version None)
Quarter: 2008Q3

REPORT INFORMATION
  Report Type: 
  Country: None (occurrence: None)
  Receive Date: 20080818
  Receipt Date: 20080604
  Transmission Date: 20090109
  Serious: No
  Sender: FDA-Public Use
  Company Number: WAES 0806USA00819

PATIENT
  Age: 64 Year
  Sex: Male

DRUGS (7)
  1. JANUVIA [Suspect]
     Indication: TYPE 2 DIABETES MELLITUS
     Dosage: 100 MG/DAILY/PO
     Route: 048
     Dates: start: 20080401
  2. GLUCOPHAGE [Concomitant]
  3. HYPEN [Concomitant]
  4. ZOCOR [Concomitant]
  5. LORATADINE [Concomitant]
  6. METFORMIN HCL [Concomitant]
  7. WARFARIN SODIUM [Concomitant]

REACTIONS (1)
  - DECREASED APPETITE [None]
